FAERS Safety Report 9379792 (Version 1)
Quarter: 2013Q3

REPORT INFORMATION
  Report Type: Spontaneous
  Country: US (occurrence: None)
  Receive Date: 20130701
  Receipt Date: 20130701
  Transmission Date: 20140515
  Serious: Yes (Other)
  Sender: FDA-Public Use
  Company Number: None

PATIENT
  Age: 74 Year
  Sex: Female
  Weight: 74.84 kg

DRUGS (2)
  1. LISINOPRIL [Suspect]
     Indication: HYPERTENSION
     Dates: start: 20130411, end: 20130611
  2. METOPROLOL [Suspect]
     Indication: HYPERTENSION
     Dates: start: 20130411, end: 20130611

REACTIONS (6)
  - Dizziness [None]
  - Blood glucose increased [None]
  - Alopecia [None]
  - Abdominal pain upper [None]
  - Cough [None]
  - Urine output decreased [None]
